FAERS Safety Report 22376534 (Version 1)
Quarter: 2023Q2

REPORT INFORMATION
  Report Type: Report from Study
  Country: US (occurrence: US)
  Receive Date: 20230528
  Receipt Date: 20230528
  Transmission Date: 20230722
  Serious: Yes (Other)
  Sender: FDA-Public Use
  Company Number: US-drreddys-SPO/USA/23/0165434

PATIENT
  Age: 27 Year
  Sex: Female

DRUGS (1)
  1. ACCUTANE [Suspect]
     Active Substance: ISOTRETINOIN
     Indication: Acne
     Dates: end: 2022

REACTIONS (2)
  - Exposure during pregnancy [Unknown]
  - Normal newborn [Recovered/Resolved]

NARRATIVE: CASE EVENT DATE: 20220530
